FAERS Safety Report 7118099-0 (Version None)
Quarter: 2010Q4

REPORT INFORMATION
  Report Type: 
  Country: None (occurrence: None)
  Receive Date: 20101123
  Receipt Date: 20101112
  Transmission Date: 20110411
  Serious: No
  Sender: FDA-Public Use
  Company Number: US-PFIZER INC-2010147584

PATIENT
  Sex: Female
  Weight: 61.678 kg

DRUGS (3)
  1. CELEBREX [Suspect]
     Indication: ARTHRITIS
     Dosage: 200 MG, DAILY
     Route: 048
     Dates: start: 20100701
  2. CELEBREX [Suspect]
     Indication: MUSCULOSKELETAL DISCOMFORT
  3. HUMIRA [Concomitant]
     Dosage: UNK

REACTIONS (1)
  - NASAL CONGESTION [None]
